FAERS Safety Report 16537902 (Version 1)
Quarter: 2019Q3

REPORT INFORMATION
  Report Type: Spontaneous
  Country: US (occurrence: US)
  Receive Date: 20190708
  Receipt Date: 20190708
  Transmission Date: 20191004
  Serious: Yes (Other)
  Sender: FDA-Public Use
  Company Number: US-SA-2019SA168931

PATIENT
  Age: 59 Year
  Sex: Male

DRUGS (3)
  1. LIDOCAINE. [Suspect]
     Active Substance: LIDOCAINE
     Indication: NERVE BLOCK
     Dosage: MULTI-QUADRANT ANAL INTERSPHINCTERIC NERVE BLOCK USING 10ML ALIQUOTS OF 0.5% BUPIVACAINE, MIXED WITH
  2. BUPIVACAINE. [Suspect]
     Active Substance: BUPIVACAINE
     Indication: NERVE BLOCK
     Dosage: MULTI-QUADRANT ANAL INTERSPHINCTERIC NERVE BLOCK USING 10ML ALIQUOTS OF 0.5% BUPIVACAINE, MIXED WITH
  3. EPINEPHRINE. [Concomitant]
     Active Substance: EPINEPHRINE
     Indication: NERVE BLOCK
     Dosage: MULTI-QUADRANT ANAL INTERSPHINCTERIC NERVE BLOCK USING 10ML ALIQUOTS OF 0.5% BUPIVACAINE, MIXED WITH

REACTIONS (5)
  - Anal inflammation [Recovering/Resolving]
  - Anal sphincter atony [Unknown]
  - Toxicity to various agents [Recovered/Resolved]
  - Anal incontinence [Recovering/Resolving]
  - Oedema [Recovering/Resolving]
